FAERS Safety Report 5881338-8 (Version None)
Quarter: 2008Q3

REPORT INFORMATION
  Report Type: 
  Country: None (occurrence: None)
  Receive Date: 20080912
  Receipt Date: 20080626
  Transmission Date: 20090109
  Serious: No
  Sender: FDA-Public Use
  Company Number: US-ABBOTT-08P-163-0459693-00

PATIENT
  Age: 57 Year
  Sex: Female

DRUGS (1)
  1. HUMIRA [Suspect]
     Indication: SCLERODERMA
     Route: 058
     Dates: start: 20071214, end: 20071214

REACTIONS (3)
  - OEDEMA PERIPHERAL [None]
  - ORAL PAIN [None]
  - RASH [None]
